FAERS Safety Report 14012347 (Version 5)
Quarter: 2017Q4

REPORT INFORMATION
  Report Type: Spontaneous
  Country: US (occurrence: US)
  Receive Date: 20170926
  Receipt Date: 20171025
  Transmission Date: 20180321
  Serious: Yes (Hospitalization)
  Sender: FDA-Public Use
  Company Number: US-BIOGEN-2017BV000153

PATIENT
  Age: 37 Year
  Sex: Male

DRUGS (1)
  1. ALPROLIX [Suspect]
     Active Substance: EFTRENONACOG ALFA
     Indication: FACTOR IX DEFICIENCY
     Route: 065
     Dates: start: 201412

REACTIONS (3)
  - Toothache [Not Recovered/Not Resolved]
  - Tooth extraction [Not Recovered/Not Resolved]
  - Mouth haemorrhage [Not Recovered/Not Resolved]

NARRATIVE: CASE EVENT DATE: 20170623
